FAERS Safety Report 5723964-2 (Version None)
Quarter: 2008Q2

REPORT INFORMATION
  Report Type: 
  Country: None (occurrence: None)
  Receive Date: 20080430
  Receipt Date: 20080424
  Transmission Date: 20081010
  Serious: Yes (Hospitalization)
  Sender: FDA-Public Use
  Company Number: US-KINGPHARMUSA00001-K200800472

PATIENT
  Age: 84 Year
  Sex: Female

DRUGS (13)
  1. ALTACE [Suspect]
     Indication: HYPERTENSION
     Dosage: 5 MG, QD
     Route: 048
  2. AMAREL [Suspect]
     Indication: DIABETES MELLITUS
     Dosage: 1 MG, QD
     Route: 048
  3. CORDARONE [Suspect]
     Indication: ATRIAL FIBRILLATION
     Dosage: 200 MG, QD
     Route: 048
     Dates: end: 20080221
  4. CARDENSIEL [Suspect]
     Indication: HYPERTENSION
     Route: 048
  5. PREVISCAN   /00789001/ [Suspect]
     Dosage: 20 MG, QD
     Route: 048
  6. TRACLEER [Concomitant]
     Dosage: UNK, UNK
     Route: 048
     Dates: start: 20070701, end: 20080212
  7. EFFERALGAN  /00020001/ [Concomitant]
     Indication: RHEUMATOID ARTHRITIS
     Route: 048
  8. INEXIUM    /01479302/ [Concomitant]
     Dosage: 20 MG, UNK
     Route: 048
  9. IMOVANE [Concomitant]
     Indication: DEPRESSION
  10. LASILIX    /00032601/ [Concomitant]
     Indication: HYPERTENSION
     Dosage: 40 MG, QD
     Route: 048
  11. TERCIAN    /00759301/ [Concomitant]
     Indication: DEPRESSION
     Dosage: 25 MG, QD
     Route: 048
  12. VASTAREL [Concomitant]
     Indication: RHEUMATOID ARTHRITIS
  13. SEROPLEX [Concomitant]
     Indication: DEPRESSION

REACTIONS (1)
  - INTERSTITIAL LUNG DISEASE [None]
